FAERS Safety Report 7015739-1 (Version None)
Quarter: 2010Q3

REPORT INFORMATION
  Report Type: 
  Country: None (occurrence: None)
  Receive Date: 20100927
  Receipt Date: 20100504
  Transmission Date: 20110219
  Serious: No
  Sender: FDA-Public Use
  Company Number: US-ASTRAZENECA-2010SE20133

PATIENT
  Age: 50 Year
  Sex: Female

DRUGS (3)
  1. ARIMIDEX [Suspect]
     Route: 048
     Dates: start: 20060101
  2. CALCIUM [Concomitant]
  3. RYTHMOL [Concomitant]
     Indication: VENTRICULAR TACHYARRHYTHMIA

REACTIONS (9)
  - ARTHRALGIA [None]
  - CHEST PAIN [None]
  - EAR PAIN [None]
  - EJECTION FRACTION DECREASED [None]
  - OESOPHAGEAL DISCOMFORT [None]
  - ORAL PAIN [None]
  - SENSITIVITY OF TEETH [None]
  - TRIGGER FINGER [None]
  - VENTRICULAR TACHYCARDIA [None]
